FAERS Safety Report 7585969-9 (Version None)
Quarter: 2011Q2

REPORT INFORMATION
  Report Type: 
  Country: None (occurrence: None)
  Receive Date: 20110603
  Receipt Date: 20110509
  Transmission Date: 20111010
  Serious: No
  Sender: FDA-Public Use
  Company Number: 2011SP021128

PATIENT
  Age: 23 Year
  Sex: Female

DRUGS (4)
  1. TOPAMAX [Concomitant]
  2. SAPHRIS [Suspect]
     Indication: BIPOLAR DISORDER
     Dosage: 5 MG;BID;SL
     Route: 060
     Dates: start: 20110502
  3. RITALIN [Concomitant]
  4. KLONOPIN [Concomitant]

REACTIONS (2)
  - NAIL DISCOLOURATION [None]
  - RASH [None]
